FAERS Safety Report 7095157-0 (Version None)
Quarter: 2010Q4

REPORT INFORMATION
  Report Type: 
  Country: None (occurrence: None)
  Receive Date: 20101109
  Receipt Date: 20101109
  Transmission Date: 20110411
  Serious: Yes (Other)
  Sender: FDA-Public Use
  Company Number: None

PATIENT
  Sex: Female
  Weight: 53.5244 kg

DRUGS (1)
  1. NAMENDA [Suspect]
     Indication: MIGRAINE PROPHYLAXIS
     Dosage: 2 TABLETS BID PO
     Route: 048
     Dates: start: 20100815, end: 20100903

REACTIONS (2)
  - DEPRESSION [None]
  - SUICIDAL IDEATION [None]
